FAERS Safety Report 12215987 (Version 1)
Quarter: 2016Q1

REPORT INFORMATION
  Report Type: Report from Study
  Country: BR (occurrence: BR)
  Receive Date: 20160328
  Receipt Date: 20160328
  Transmission Date: 20160526
  Serious: Yes (Other)
  Sender: FDA-Public Use
  Company Number: BR-ROCHE-1732233

PATIENT
  Sex: Female
  Weight: 45 kg

DRUGS (7)
  1. PREDNISONE. [Concomitant]
     Active Substance: PREDNISONE
     Indication: RHEUMATOID ARTHRITIS
     Route: 065
  2. FUROSEMIDE. [Concomitant]
     Active Substance: FUROSEMIDE
     Indication: CARDIAC DISORDER
     Route: 065
  3. VOLIBRIS [Concomitant]
     Active Substance: AMBRISENTAN
     Indication: BLOOD PRESSURE MEASUREMENT
     Route: 065
  4. ECASIL [Concomitant]
     Active Substance: ASPIRIN
     Indication: CARDIAC DISORDER
     Route: 065
  5. ACTEMRA [Suspect]
     Active Substance: TOCILIZUMAB
     Indication: RHEUMATOID ARTHRITIS
     Dosage: LATEST INFUSION: 01/MAR/2016
     Route: 042
     Dates: start: 20120816
  6. ALDACTONE (BRAZIL) [Concomitant]
     Indication: CARDIAC DISORDER
     Route: 065
  7. ARADOIS [Concomitant]
     Active Substance: LOSARTAN POTASSIUM
     Indication: CARDIAC DISORDER
     Route: 065

REACTIONS (4)
  - Dysphonia [Not Recovered/Not Resolved]
  - Pulmonary arterial hypertension [Not Recovered/Not Resolved]
  - Influenza [Recovering/Resolving]
  - Pulmonary fibrosis [Not Recovered/Not Resolved]
